FAERS Safety Report 25677477 (Version 2)
Quarter: 2025Q3

REPORT INFORMATION
  Report Type: Spontaneous
  Country: JP (occurrence: JP)
  Receive Date: 20250813
  Receipt Date: 20250910
  Transmission Date: 20251020
  Serious: Yes (Life-Threatening, Hospitalization)
  Sender: AMGEN
  Company Number: JP-AMGEN-JPNSP2025157270

PATIENT
  Age: 70 Year
  Sex: Male

DRUGS (15)
  1. MVASI [Suspect]
     Active Substance: BEVACIZUMAB-AWWB
     Indication: Colon cancer
     Dosage: 10 MILLIGRAM/KILOGRAM, Q3WK, (ADMINISTERED ON DAY 1) (INTRAVENOUS DRIP INFUSION)
     Route: 040
  2. MVASI [Suspect]
     Active Substance: BEVACIZUMAB-AWWB
     Route: 040
  3. OXALIPLATIN [Suspect]
     Active Substance: OXALIPLATIN
     Indication: Colon cancer
     Dosage: 130 MILLIGRAM/SQ. METER, Q3WK, (ADMINISTERED ON DAY 1)
     Route: 065
  4. CAPECITABINE [Suspect]
     Active Substance: CAPECITABINE
     Indication: Colon cancer
     Dosage: 2000 MILLIGRAM/SQ. METER, BID, (DAY 1 EVENING UNTIL MORNING OF DAY 15, EVERY 3 WEEKS)
     Route: 048
  5. PALONOSETRON [Concomitant]
     Active Substance: PALONOSETRON
     Indication: Prophylaxis of nausea and vomiting
     Route: 040
  6. DEXAMETHASONE [Concomitant]
     Active Substance: DEXAMETHASONE
     Indication: Prophylaxis of nausea and vomiting
     Route: 065
  7. APREPITANT [Concomitant]
     Active Substance: APREPITANT
     Indication: Prophylaxis of nausea and vomiting
     Route: 048
  8. APREPITANT [Concomitant]
     Active Substance: APREPITANT
     Route: 048
  9. TS-1 [Concomitant]
     Active Substance: GIMERACIL\OTERACIL POTASSIUM\TEGAFUR
  10. IRINOTECAN [Concomitant]
     Active Substance: IRINOTECAN
  11. CLOPIDOGREL [Concomitant]
     Active Substance: CLOPIDOGREL BISULFATE
     Route: 065
  12. VALSARTAN [Concomitant]
     Active Substance: VALSARTAN
     Route: 065
  13. IFENPRODIL [Concomitant]
     Active Substance: IFENPRODIL
     Route: 065
  14. FOLIC ACID [Concomitant]
     Active Substance: FOLIC ACID
     Route: 065
  15. TEPRENONE [Concomitant]
     Active Substance: TEPRENONE
     Route: 065

REACTIONS (1)
  - Inappropriate antidiuretic hormone secretion [Recovered/Resolved]
